FAERS Safety Report 9722994 (Version 1)
Quarter: 2013Q4

REPORT INFORMATION
  Report Type: Spontaneous
  Country: US (occurrence: None)
  Receive Date: 20131127
  Receipt Date: 20131127
  Transmission Date: 20140711
  Serious: Yes (Other)
  Sender: FDA-Public Use
  Company Number: None

PATIENT
  Age: 40 Year
  Sex: Female
  Weight: 63.5 kg

DRUGS (1)
  1. SULFAMETH/TRIMETHOPRIM [Suspect]
     Indication: BACTERIAL INFECTION
     Dosage: 1 DOSE TWICE DAILY 11/18/2013 TAKEN BY MOUTH 800 / 160 TABS
     Route: 048
     Dates: start: 20131118, end: 20131118

REACTIONS (2)
  - Myalgia [None]
  - Arthralgia [None]
